FAERS Safety Report 12185313 (Version 1)
Quarter: 2016Q1

REPORT INFORMATION
  Report Type: Spontaneous
  Country: CH (occurrence: CH)
  Receive Date: 20160316
  Receipt Date: 20160316
  Transmission Date: 20160526
  Serious: Yes (Hospitalization)
  Sender: FDA-Public Use
  Company Number: CH-PFIZER INC-2016152357

PATIENT
  Age: 36 Year
  Sex: Female

DRUGS (1)
  1. DOSTINEX [Suspect]
     Active Substance: CABERGOLINE
     Indication: LACTATION INHIBITION THERAPY
     Dosage: 1 MG, SINGLE
     Route: 048
     Dates: start: 20160207

REACTIONS (6)
  - Confusional state [Recovering/Resolving]
  - Aphasia [Recovering/Resolving]
  - Vasculitis [Recovering/Resolving]
  - Cerebral vasoconstriction [Recovering/Resolving]
  - Hemiplegia [Recovering/Resolving]
  - Cerebral haemorrhage [Recovering/Resolving]

NARRATIVE: CASE EVENT DATE: 201602
